FAERS Safety Report 25754454 (Version 2)
Quarter: 2025Q3

REPORT INFORMATION
  Report Type: Report from Study
  Country: US (occurrence: US)
  Receive Date: 20250903
  Receipt Date: 20250922
  Transmission Date: 20251021
  Serious: No
  Sender: SUNOVION
  Company Number: US-SUMITOMO PHARMA SWITZERLAND GMBH-2025SPA011020

PATIENT
  Age: 87 Year
  Sex: Male

DRUGS (13)
  1. ORGOVYX [Suspect]
     Active Substance: RELUGOLIX
     Indication: Prostate cancer
     Route: 048
     Dates: start: 20250801, end: 20250801
  2. ORGOVYX [Suspect]
     Active Substance: RELUGOLIX
     Route: 048
  3. ALLOPURINOL [Concomitant]
     Active Substance: ALLOPURINOL
  4. AMPICILLIN [Concomitant]
     Active Substance: AMPICILLIN
  5. ASPIRIN [Concomitant]
     Active Substance: ASPIRIN
  6. BUMETANIDE [Concomitant]
     Active Substance: BUMETANIDE
  7. CEFTRIAXONE SODIUM [Concomitant]
     Active Substance: CEFTRIAXONE SODIUM
  8. ELIQUIS [Concomitant]
     Active Substance: APIXABAN
  9. LEVALBUTEROL TARTRATE [Concomitant]
     Active Substance: LEVALBUTEROL TARTRATE
  10. LOSARTAN POTASSIUM [Concomitant]
     Active Substance: LOSARTAN POTASSIUM
  11. METOLAZONE [Concomitant]
     Active Substance: METOLAZONE
  12. METOPROLOL TARTRATE [Concomitant]
     Active Substance: METOPROLOL TARTRATE
  13. NUBEQA [Concomitant]
     Active Substance: DAROLUTAMIDE

REACTIONS (3)
  - Fatigue [Unknown]
  - Diarrhoea [Unknown]
  - Product dose omission issue [Recovered/Resolved]
